FAERS Safety Report 19940660 (Version 1)
Quarter: 2021Q4

REPORT INFORMATION
  Report Type: Spontaneous
  Country: US (occurrence: US)
  Receive Date: 20211011
  Receipt Date: 20211011
  Transmission Date: 20220304
  Serious: Yes (Other)
  Sender: FDA-Public Use
  Company Number: 2021A759347

PATIENT
  Age: 61 Year
  Sex: Female
  Weight: 71.7 kg

DRUGS (1)
  1. LYNPARZA [Suspect]
     Active Substance: OLAPARIB
     Indication: Ovarian cancer
     Dosage: TAKE 1 TABLET IN THE MORNING AND 2 TABLETS AT NIGHT DAILY
     Route: 048
     Dates: start: 202010

REACTIONS (2)
  - Myalgia [Unknown]
  - Arthralgia [Unknown]
